FAERS Safety Report 6216522-7 (Version None)
Quarter: 2009Q2

REPORT INFORMATION
  Report Type: 
  Country: None (occurrence: None)
  Receive Date: 20090605
  Receipt Date: 20090529
  Transmission Date: 20091009
  Serious: Yes (Other)
  Sender: FDA-Public Use
  Company Number: US-ABBOTT-09P-163-0565351-00

PATIENT
  Sex: Female
  Weight: 80.358 kg

DRUGS (10)
  1. ZEMPLAR [Suspect]
     Indication: HYPERPARATHYROIDISM
     Route: 048
     Dates: start: 20090226
  2. TRILIPIX [Concomitant]
     Indication: BLOOD CHOLESTEROL INCREASED
  3. TOPROL-XL [Concomitant]
     Indication: CARDIAC DISORDER
  4. SIMVASTATIN [Concomitant]
     Indication: BLOOD CHOLESTEROL INCREASED
  5. AMIODARONE HCL [Concomitant]
     Indication: HEART RATE IRREGULAR
  6. LEVOTHYROXINE [Concomitant]
     Indication: HYPOTHYROIDISM
  7. KLOR-CON [Concomitant]
     Indication: BLOOD POTASSIUM DECREASED
  8. ALLOPURINOL [Concomitant]
     Indication: GOUT
  9. LASIX [Concomitant]
     Indication: FLUID RETENTION
  10. OXYCONTIN [Concomitant]
     Indication: PAIN
     Dosage: 5 MG/325 MG

REACTIONS (1)
  - HEPATIC NEOPLASM MALIGNANT [None]
